FAERS Safety Report 5874882 (Version 4)
Quarter: 2013Q1

REPORT INFORMATION
  Report Type: Not Available
  Country: DK (occurrence: DK)
  Receive Date: 20050909
  Receipt Date: 20130321
  Transmission Date: 20140127
  Serious: Yes (Death, Other)
  Sender: FDA-Public Use
  Company Number: DK-RB-1165-2004

PATIENT
  Age: 19 None
  Sex: Male
  Weight: 93 kg

DRUGS (9)
  1. SUBUTEX [Suspect]
     Indication: PRODUCT USED FOR UNKNOWN INDICATION
     Route: 065
  2. CISORDINOL DEPOT [Suspect]
     Indication: SCHIZOPHRENIA
     Dosage: 125 MG EVERY 14 DAYS
     Route: 065
     Dates: start: 20020814, end: 20020926
  3. SEROQUEL [Suspect]
     Indication: SCHIZOPHRENIA
     Route: 048
     Dates: start: 20021011, end: 20030413
  4. ZYPREXA [Suspect]
     Indication: SCHIZOPHRENIA
     Route: 048
     Dates: start: 20010129, end: 20020506
  5. RIVOTRIL [Suspect]
     Indication: SCHIZOPHRENIA
     Route: 048
     Dates: start: 20020310, end: 20030413
  6. IMOVANE [Suspect]
     Indication: SCHIZOPHRENIA
     Route: 048
     Dates: start: 20010126, end: 20030413
  7. BURONIL [Suspect]
     Indication: SCHIZOPHRENIA
     Dosage: 50 OR 100 MG, 3-4 TIMES DAILY, BUT MAXIMALY 300 MG IN 24 HOURS
     Route: 048
     Dates: start: 20030404, end: 20030413
  8. CISORDINOL [Suspect]
     Indication: SCHIZOPHRENIA
     Dosage: 10 OR 30 MG ONCE DAILY
     Route: 048
     Dates: start: 20010216, end: 20021029
  9. TRUXAL [Suspect]
     Indication: SCHIZOPHRENIA
     Dosage: 100 OR 200 MG, 2-3 TIMES DAILY
     Route: 048
     Dates: start: 20010126, end: 20030413

REACTIONS (11)
  - Splenomegaly [Unknown]
  - Visual acuity reduced [Unknown]
  - Convulsion [Unknown]
  - Pulmonary haemorrhage [Unknown]
  - Sudden death [Fatal]
  - Tension [Unknown]
  - Obesity [Unknown]
  - Back pain [Unknown]
  - Restlessness [Unknown]
  - Vomiting [Unknown]
  - Gingival bleeding [Unknown]
